FAERS Safety Report 10671138 (Version 2)
Quarter: 2015Q1

REPORT INFORMATION
  Report Type: Spontaneous
  Country: US (occurrence: US)
  Receive Date: 20141223
  Receipt Date: 20150205
  Transmission Date: 20150720
  Serious: Yes (Hospitalization, Other)
  Sender: FDA-Public Use
  Company Number: US-BAYER-2014-187585

PATIENT
  Age: 30 Year
  Sex: Female
  Weight: 61.22 kg

DRUGS (1)
  1. MIRENA [Suspect]
     Active Substance: LEVONORGESTREL
     Indication: CONTRACEPTION
     Dosage: 20 MCG/24HR, CONT
     Route: 015
     Dates: start: 20060516, end: 20090623

REACTIONS (18)
  - Uterine perforation [None]
  - Emotional distress [None]
  - Depressed mood [None]
  - Pelvic pain [None]
  - Abdominal pain [None]
  - Medical device discomfort [None]
  - Fear [None]
  - Procedural pain [None]
  - Complication of device removal [None]
  - Caesarean section [None]
  - Depression [None]
  - Injury [None]
  - Anxiety [None]
  - Genital haemorrhage [None]
  - Internal injury [None]
  - Device dislocation [None]
  - Abortion spontaneous [None]
  - Acrochordon [None]

NARRATIVE: CASE EVENT DATE: 200906
